FAERS Safety Report 9906751 (Version 1)
Quarter: 2014Q1

REPORT INFORMATION
  Report Type: Spontaneous
  Country: GB (occurrence: GB)
  Receive Date: 20140218
  Receipt Date: 20140218
  Transmission Date: 20141002
  Serious: Yes (Other)
  Sender: FDA-Public Use
  Company Number: GB-BAYER-2014-021948

PATIENT
  Age: 26 Year
  Sex: Female
  Weight: 89.81 kg

DRUGS (2)
  1. CANESTEN CREAM COMBI INTERNAL + EXTERNAL CREAMS [Suspect]
     Indication: VULVOVAGINAL CANDIDIASIS
     Dosage: UNK
     Route: 061
     Dates: start: 20131229, end: 20131229
  2. CANESTEN CREAM COMBI INTERNAL + EXTERNAL CREAMS [Suspect]
     Indication: VULVOVAGINAL CANDIDIASIS
     Dosage: UNK
     Route: 067
     Dates: start: 20140103, end: 20140104

REACTIONS (7)
  - Vaginal discharge [Not Recovered/Not Resolved]
  - Genital swelling [Unknown]
  - Pruritus generalised [Recovered/Resolved with Sequelae]
  - Application site pain [Recovered/Resolved]
  - Pain [Recovered/Resolved with Sequelae]
  - Pain in extremity [Recovered/Resolved with Sequelae]
  - Skin burning sensation [None]
